FAERS Safety Report 7704003-0 (Version None)
Quarter: 2011Q3

REPORT INFORMATION
  Report Type: 
  Country: None (occurrence: None)
  Receive Date: 20110823
  Receipt Date: 20110812
  Transmission Date: 20111222
  Serious: Yes (Death, Other)
  Sender: FDA-Public Use
  Company Number: PH-BAXTER-2011BH026672

PATIENT
  Age: 19 Year
  Sex: Male

DRUGS (1)
  1. DIANEAL [Suspect]
     Indication: PERITONEAL DIALYSIS
     Route: 033
     Dates: start: 20101101

REACTIONS (6)
  - ABDOMINAL PAIN [None]
  - DEATH [None]
  - RESPIRATORY ARREST [None]
  - NECK PAIN [None]
  - SYNCOPE [None]
  - FALL [None]
